FAERS Safety Report 8889959 (Version 1)
Quarter: 2012Q4

REPORT INFORMATION
  Report Type: 
  Country: US (occurrence: US)
  Receive Date: 20121107
  Receipt Date: 20121107
  Transmission Date: 20130627
  Serious: Yes (Other)
  Sender: FDA-Public Use
  Company Number: PHHY2012US100879

PATIENT
  Sex: Female

DRUGS (16)
  1. GILENYA [Suspect]
     Indication: MULTIPLE SCLEROSIS
     Dosage: 0.5 mg, QD
     Route: 048
     Dates: start: 20110314
  2. CELLCEPT [Concomitant]
     Indication: MULTIPLE SCLEROSIS
  3. SOLU-MEDROL [Concomitant]
     Indication: MULTIPLE SCLEROSIS
     Dates: start: 201102
  4. MULTIVITAMINS [Concomitant]
     Dosage: 1 DF, QD
  5. MONTELUKAST [Concomitant]
     Dosage: 10 mg, QHS
  6. ALEVE [Concomitant]
  7. PREGABALIN [Concomitant]
     Dosage: 100 mg, TID
  8. TIZANIDINE [Concomitant]
     Dosage: 3 DF, TID
  9. MOMETASONE [Concomitant]
     Dosage: Spay in affected nostril, QD
  10. ARMODAFINIL [Concomitant]
     Dosage: 1 DF, QD
  11. FLUOXETINE [Concomitant]
     Dosage: 1 DF, QD
  12. POTASSIUM CHLORIDE [Concomitant]
     Dosage: 1 DF, PRN
  13. SYNTHROID [Concomitant]
     Dosage: 1 DF, QD
  14. ERGOCALCIFEROL [Concomitant]
     Dosage: 1 DF, QW
  15. LEVETIRACETAM [Concomitant]
     Dosage: 500 mg, UNK
  16. PROZAC [Concomitant]

REACTIONS (5)
  - Drug-induced liver injury [Unknown]
  - Liver function test abnormal [Recovering/Resolving]
  - Aspartate aminotransferase increased [Recovering/Resolving]
  - Alanine aminotransferase increased [Recovering/Resolving]
  - Blood alkaline phosphatase increased [Recovering/Resolving]
